FAERS Safety Report 11917278 (Version 12)
Quarter: 2018Q2

REPORT INFORMATION
  Report Type: Spontaneous
  Country: BR (occurrence: BR)
  Receive Date: 20160114
  Receipt Date: 20180409
  Transmission Date: 20180711
  Serious: Yes (Other)
  Sender: FDA-Public Use
  Company Number: BR-SA-2016SA004976

PATIENT
  Age: 56 Year
  Sex: Female
  Weight: 67 kg

DRUGS (9)
  1. APROZIDE [Suspect]
     Active Substance: HYDROCHLOROTHIAZIDE\IRBESARTAN
     Indication: HYPERTENSION
     Route: 048
  2. APROZIDE [Suspect]
     Active Substance: HYDROCHLOROTHIAZIDE\IRBESARTAN
     Indication: HYPERTENSION
     Dosage: STRENGTH: 300 MG/12.5 MG
     Route: 048
     Dates: start: 2006
  3. APROZIDE [Suspect]
     Active Substance: HYDROCHLOROTHIAZIDE\IRBESARTAN
     Indication: HYPERTENSION
     Dosage: DOSAGE STRENGTH=300MG;12.5 MG
     Route: 048
     Dates: start: 20160106
  4. APROZIDE [Suspect]
     Active Substance: HYDROCHLOROTHIAZIDE\IRBESARTAN
     Indication: HYPERTENSION
     Route: 048
     Dates: start: 20180320, end: 20180326
  5. APROZIDE [Suspect]
     Active Substance: HYDROCHLOROTHIAZIDE\IRBESARTAN
     Indication: HYPERTENSION
     Route: 048
     Dates: start: 20180320, end: 20180326
  6. APROZIDE [Suspect]
     Active Substance: HYDROCHLOROTHIAZIDE\IRBESARTAN
     Indication: HYPERTENSION
     Dosage: DOSAGE STRENGTH=300MG;12.5 MG
     Route: 048
     Dates: start: 20160106
  7. APROZIDE [Suspect]
     Active Substance: HYDROCHLOROTHIAZIDE\IRBESARTAN
     Indication: HYPERTENSION
     Dosage: STRENGTH: 300 MG/12.5 MG
     Route: 048
     Dates: start: 2006
  8. GLIFAGE [Concomitant]
     Active Substance: METFORMIN HYDROCHLORIDE
     Indication: TYPE 1 DIABETES MELLITUS
     Dosage: STRENGTH: 850 MG
     Route: 048
     Dates: start: 2005
  9. APROZIDE [Suspect]
     Active Substance: HYDROCHLOROTHIAZIDE\IRBESARTAN
     Indication: HYPERTENSION
     Route: 048

REACTIONS (12)
  - Surgery [Unknown]
  - Hernia [Recovered/Resolved]
  - Blood pressure increased [Unknown]
  - Blood pressure increased [Recovered/Resolved]
  - Migraine [Unknown]
  - Drug ineffective [Unknown]
  - Malaise [Recovered/Resolved]
  - Malaise [Recovered/Resolved]
  - Inflammation [Recovered/Resolved]
  - Blood pressure fluctuation [Unknown]
  - Headache [Recovered/Resolved]
  - Blood pressure abnormal [Unknown]

NARRATIVE: CASE EVENT DATE: 20150927
